FAERS Safety Report 7705299-1 (Version None)
Quarter: 2011Q3

REPORT INFORMATION
  Report Type: 
  Country: None (occurrence: None)
  Receive Date: 20110823
  Receipt Date: 20110823
  Transmission Date: 20111222
  Serious: Yes (Hospitalization)
  Sender: FDA-Public Use
  Company Number: None

PATIENT
  Age: 76 Year
  Sex: Male
  Weight: 78.1094 kg

DRUGS (6)
  1. ALLOPURINOL [Concomitant]
  2. METOPROLOL [Concomitant]
  3. LISINOPRIL [Concomitant]
  4. HYDROCODONE/APA [Concomitant]
  5. KRYSTEXXA [Suspect]
     Indication: GOUT
     Dosage: 8 MG IV ONCE
     Route: 042
     Dates: start: 20110722
  6. METHYLPREDNISOLONE [Concomitant]

REACTIONS (10)
  - LEUKOCYTOSIS [None]
  - SOMNOLENCE [None]
  - RENAL FAILURE CHRONIC [None]
  - CONVULSION [None]
  - URINARY INCONTINENCE [None]
  - GLUCOSE-6-PHOSPHATE DEHYDROGENASE DEFICIENCY [None]
  - MENTAL STATUS CHANGES [None]
  - BRAIN NATRIURETIC PEPTIDE INCREASED [None]
  - INFLAMMATION [None]
  - NEPHROGENIC ANAEMIA [None]
